FAERS Safety Report 5156670-6 (Version None)
Quarter: 2006Q4

REPORT INFORMATION
  Report Type: 
  Country: None (occurrence: None)
  Receive Date: 20061115
  Receipt Date: 20061030
  Transmission Date: 20070319
  Serious: Yes (Other)
  Sender: FDA-Public Use
  Company Number: DSA_28942_2006

PATIENT
  Sex: Female
  Weight: 47.6277 kg

DRUGS (10)
  1. ENALAPRIL MALEATE [Suspect]
     Indication: BLOOD PRESSURE ABNORMAL
     Dosage: DF
     Dates: end: 20051011
  2. RAZADYNE [Suspect]
     Indication: DEMENTIA ALZHEIMER'S TYPE
     Dosage: 4 MG BID PO
     Route: 048
     Dates: start: 20041101, end: 20051117
  3. RAZADYNE [Suspect]
     Indication: DEMENTIA ALZHEIMER'S TYPE
     Dosage: 8 MG BID PO
     Route: 048
     Dates: start: 20051118
  4. FOSAMAX [Concomitant]
  5. EVISTA [Concomitant]
  6. MIACALCIN [Concomitant]
  7. HYDROCHLOROTHIAZIDE [Concomitant]
  8. NABUMETONE [Concomitant]
  9. ASPIRIN [Concomitant]
  10. THYROID TAB [Concomitant]

REACTIONS (7)
  - COMPUTERISED TOMOGRAM ABNORMAL [None]
  - COUGH [None]
  - GASTROOESOPHAGEAL REFLUX DISEASE [None]
  - INCREASED UPPER AIRWAY SECRETION [None]
  - LUNG DISORDER [None]
  - PULMONARY MASS [None]
  - SCAR [None]
